FAERS Safety Report 7773651-4 (Version None)
Quarter: 2011Q3

REPORT INFORMATION
  Report Type: 
  Country: None (occurrence: None)
  Receive Date: 20110923
  Receipt Date: 20110916
  Transmission Date: 20111222
  Serious: Yes (Hospitalization)
  Sender: FDA-Public Use
  Company Number: US-BIOGENIDEC-2011BI035845

PATIENT
  Age: 38 Year
  Sex: Female

DRUGS (5)
  1. CYMBALTA [Concomitant]
     Indication: DEPRESSION
  2. TYSABRI [Suspect]
     Route: 042
     Dates: start: 20110501
  3. TYSABRI [Suspect]
     Route: 042
     Dates: start: 20090501, end: 20091001
  4. SEROQUEL [Concomitant]
     Indication: BIPOLAR I DISORDER
  5. TYSABRI [Suspect]
     Indication: MULTIPLE SCLEROSIS
     Route: 042
     Dates: start: 20080926, end: 20080926

REACTIONS (6)
  - FATIGUE [None]
  - INSOMNIA [None]
  - MOBILITY DECREASED [None]
  - ANXIETY [None]
  - SUICIDAL IDEATION [None]
  - FALL [None]
